FAERS Safety Report 19178951 (Version 1)
Quarter: 2021Q2

REPORT INFORMATION
  Report Type: Spontaneous
  Country: GB (occurrence: GB)
  Receive Date: 20210426
  Receipt Date: 20210426
  Transmission Date: 20210717
  Serious: Yes (Hospitalization)
  Sender: FDA-Public Use
  Company Number: GB-EMCURE PHARMACEUTICALS LTD-2021-EPL-001312

PATIENT
  Age: 74 Year
  Sex: Male

DRUGS (11)
  1. SITAGLIPTIN [Suspect]
     Active Substance: SITAGLIPTIN
     Indication: PRODUCT USED FOR UNKNOWN INDICATION
     Dosage: 100 MILLIGRAM, 1 DOSE PER 1 D
     Route: 048
  2. FORMOTEROL [Concomitant]
     Active Substance: FORMOTEROL
  3. EZETIMIBE. [Concomitant]
     Active Substance: EZETIMIBE
     Dosage: 10 MILLIGRAM, 1 DOSE PER 1 D
     Route: 048
  4. HYDROXOCOBALAMIN [Concomitant]
     Active Substance: HYDROXOCOBALAMIN
     Dosage: 1 DOSAGE FORM, 1 DOSE PER 3M, 1MG/ML
  5. GLIMEPIRIDE. [Suspect]
     Active Substance: GLIMEPIRIDE
     Indication: PRODUCT USED FOR UNKNOWN INDICATION
     Dosage: 4 MILLIGRAM, 1 DOSE PER 1 D
     Route: 048
  6. MOMETASONE [Concomitant]
     Active Substance: MOMETASONE
     Dosage: 100 MICROGRAM, 2 DOSE PER 1 D,EACH NOSTRIL. 50MCG/DOSE.  THEN REDUCE WHEN SYMPTOMS UNDER CONTROL
     Dates: start: 20200922
  7. BECLOMETASONE [Concomitant]
     Active Substance: BECLOMETHASONE DIPROPIONATE
  8. RAMIPRIL. [Concomitant]
     Active Substance: RAMIPRIL
     Dosage: 2.5 MILLIGRAM, 1 DOSE PER 1 D
     Route: 048
  9. METFORMIN [Suspect]
     Active Substance: METFORMIN HYDROCHLORIDE
     Indication: PRODUCT USED FOR UNKNOWN INDICATION
     Dosage: 1500 MILLIGRAM, 2 DOSE PER 1 D, HELD, RESUME PRIOR TO DISCHARGE
     Route: 048
  10. HYPROMELLOSE [Concomitant]
     Active Substance: HYPROMELLOSES
     Dosage: 2 GTT DROPS, 4 DOSE PER 1 D, 10ML
     Route: 050
  11. SALBUTAMOL [Concomitant]
     Active Substance: ALBUTEROL
     Dosage: 2 DOSAGE FORM, PUFFS FOUR TIMES DAIL
     Route: 055

REACTIONS (3)
  - Pneumonia aspiration [Unknown]
  - Hypoglycaemia [Recovered/Resolved]
  - Seizure [Unknown]
